FAERS Safety Report 10022443 (Version 1)
Quarter: 2014Q1

REPORT INFORMATION
  Report Type: Spontaneous
  Country: IT (occurrence: IT)
  Receive Date: 20140319
  Receipt Date: 20140319
  Transmission Date: 20141002
  Serious: Yes (Hospitalization)
  Sender: FDA-Public Use
  Company Number: PHHY2014IT030577

PATIENT
  Sex: Female

DRUGS (2)
  1. NIMESULIDE [Suspect]
     Indication: INFLUENZA
     Dosage: 100 MG, ONCE/SINGLE
     Route: 048
     Dates: start: 20140306, end: 20140306
  2. PARACETAMOL [Suspect]
     Dosage: 1 G, ONCE/SINGLE
     Route: 048
     Dates: start: 20140305, end: 20140305

REACTIONS (2)
  - Presyncope [Not Recovered/Not Resolved]
  - Fall [Not Recovered/Not Resolved]
